FAERS Safety Report 16725717 (Version 1)
Quarter: 2019Q3

REPORT INFORMATION
  Report Type: Spontaneous
  Country: KR (occurrence: KR)
  Receive Date: 20190821
  Receipt Date: 20190821
  Transmission Date: 20191005
  Serious: Yes (Other)
  Sender: FDA-Public Use
  Company Number: KR-PFIZER INC-2019354714

PATIENT

DRUGS (2)
  1. CYCLOPHOSPHAMIDE. [Suspect]
     Active Substance: CYCLOPHOSPHAMIDE
     Indication: LUPUS NEPHRITIS
     Dosage: UNK
  2. METHYLPREDNISOLONE ACETATE. [Suspect]
     Active Substance: METHYLPREDNISOLONE ACETATE
     Indication: LUPUS NEPHRITIS
     Dosage: UNK

REACTIONS (2)
  - Pleural effusion [Recovered/Resolved]
  - Nocardiosis [Recovered/Resolved]
